FAERS Safety Report 16538849 (Version 1)
Quarter: 2019Q3

REPORT INFORMATION
  Report Type: Spontaneous
  Country: US (occurrence: US)
  Receive Date: 20190524
  Receipt Date: 20190524
  Transmission Date: 20191004
  Serious: No
  Sender: FDA-Public Use
  Company Number: None

PATIENT
  Age: 42 Year
  Sex: Female

DRUGS (3)
  1. NEULASTA [Suspect]
     Active Substance: PEGFILGRASTIM
     Indication: AGRANULOCYTOSIS
     Dates: start: 201903, end: 201904
  2. NEULASTA [Suspect]
     Active Substance: PEGFILGRASTIM
     Indication: BREAST CANCER FEMALE
  3. NEULASTA [Suspect]
     Active Substance: PEGFILGRASTIM
     Indication: MALIGNANT LYMPHOID NEOPLASM

REACTIONS (1)
  - Bone pain [None]

NARRATIVE: CASE EVENT DATE: 20190524
